FAERS Safety Report 7959026-3 (Version None)
Quarter: 2011Q4

REPORT INFORMATION
  Report Type: 
  Country: None (occurrence: None)
  Receive Date: 20111206
  Receipt Date: 20111125
  Transmission Date: 20120403
  Serious: Yes (Other)
  Sender: FDA-Public Use
  Company Number: GB-GILEAD-2011-0047609

PATIENT
  Sex: Male

DRUGS (5)
  1. LASIX [Concomitant]
     Dosage: UNK
     Route: 048
     Dates: start: 20110729
  2. SERETIDE DISCUS [Concomitant]
     Dosage: 500MCG TWICE PER DAY
     Route: 055
  3. SPORANOX [Concomitant]
     Route: 048
     Dates: start: 20110101
  4. LEVOTHYROXINE SODIUM [Concomitant]
     Dosage: 75MCG PER DAY
     Route: 048
  5. AMBRISENTAN [Suspect]
     Indication: PULMONARY ARTERIAL HYPERTENSION
     Route: 048
     Dates: start: 20110729, end: 20111001

REACTIONS (3)
  - DIARRHOEA [None]
  - FACE OEDEMA [None]
  - OEDEMA PERIPHERAL [None]
